FAERS Safety Report 7729367-3 (Version None)
Quarter: 2011Q3

REPORT INFORMATION
  Report Type: 
  Country: None (occurrence: None)
  Receive Date: 20110906
  Receipt Date: 20110830
  Transmission Date: 20111222
  Serious: No
  Sender: FDA-Public Use
  Company Number: US-PFIZER INC-2011177274

PATIENT
  Sex: Female

DRUGS (6)
  1. FIORICET [Suspect]
     Indication: MIGRAINE
     Dosage: UNK
  2. PRISTIQ [Suspect]
     Dosage: 50 MG, 1X/DAY AT BEDTIME
  3. CYMBALTA [Suspect]
     Indication: HEADACHE
     Dosage: 4 TABLETS IN THE MORNING
  4. LEXAPRO [Suspect]
     Dosage: UNK
  5. KLONOPIN [Suspect]
     Dosage: ONE OR TWO .05MG
  6. REGLAN [Suspect]
     Dosage: UNK

REACTIONS (1)
  - NO ADVERSE EVENT [None]
